FAERS Safety Report 15550773 (Version 2)
Quarter: 2019Q3

REPORT INFORMATION
  Report Type: Spontaneous
  Country: US (occurrence: US)
  Receive Date: 20181025
  Receipt Date: 20190828
  Transmission Date: 20191004
  Serious: No
  Sender: FDA-Public Use
  Company Number: US-INCYTE CORPORATION-2018IN010660

PATIENT

DRUGS (2)
  1. JAKAFI [Suspect]
     Active Substance: RUXOLITINIB
     Indication: POLYCYTHAEMIA VERA
     Dosage: 20 MG, BID
     Route: 048
     Dates: start: 201807
  2. JAKAFI [Suspect]
     Active Substance: RUXOLITINIB
     Dosage: 15MG QAM, 20MG QPM
     Route: 048
     Dates: start: 201807

REACTIONS (3)
  - Weight increased [Unknown]
  - Therapeutic response unexpected [Unknown]
  - Cystitis [Unknown]
